FAERS Safety Report 25700985 (Version 3)
Quarter: 2025Q4

REPORT INFORMATION
  Report Type: Spontaneous
  Country: US (occurrence: US)
  Receive Date: 20250819
  Receipt Date: 20251210
  Transmission Date: 20260117
  Serious: Yes (Other)
  Sender: SANOFI AVENTIS
  Company Number: US-SA-2025SA246759

PATIENT
  Age: 41 Year
  Sex: Female

DRUGS (2)
  1. DUPIXENT [Suspect]
     Active Substance: DUPILUMAB
     Indication: Eosinophilic oesophagitis
     Dosage: 300 MG, QW
     Route: 058
     Dates: start: 202409, end: 20250815
  2. XOLAIR [Concomitant]
     Active Substance: OMALIZUMAB
     Dosage: UNK(AUTOINJECTOR)
     Dates: end: 20250815

REACTIONS (7)
  - Anaphylactic reaction [Unknown]
  - Pharyngeal swelling [Unknown]
  - Abdominal discomfort [Unknown]
  - Migraine [Unknown]
  - Visual impairment [Unknown]
  - Eosinophilic oesophagitis [Unknown]
  - Hypersensitivity [Unknown]

NARRATIVE: CASE EVENT DATE: 20250101
